FAERS Safety Report 8208418-6 (Version None)
Quarter: 2012Q1

REPORT INFORMATION
  Report Type: 
  Country: None (occurrence: None)
  Receive Date: 20120314
  Receipt Date: 20120302
  Transmission Date: 20120608
  Serious: Yes (Hospitalization)
  Sender: FDA-Public Use
  Company Number: US-ELI_LILLY_AND_COMPANY-US201203000994

PATIENT
  Sex: Female

DRUGS (1)
  1. GEMZAR [Suspect]
     Indication: MALIGNANT HEPATOBILIARY NEOPLASM
     Dosage: UNK
     Dates: start: 20111110

REACTIONS (1)
  - HOSPITALISATION [None]
